FAERS Safety Report 18441804 (Version 3)
Quarter: 2020Q4

REPORT INFORMATION
  Report Type: Report from Study
  Country: US (occurrence: US)
  Receive Date: 20201029
  Receipt Date: 20201125
  Transmission Date: 20210114
  Serious: No
  Sender: FDA-Public Use
  Company Number: US-BIOVITRUM-2020US5613

PATIENT
  Sex: Female

DRUGS (5)
  1. KINERET [Suspect]
     Active Substance: ANAKINRA
     Indication: RHEUMATOID ARTHRITIS
     Route: 058
     Dates: start: 20201011
  2. DIAMOX SEQUELS [Concomitant]
     Active Substance: ACETAZOLAMIDE
  3. SYNTHROID [Concomitant]
     Active Substance: LEVOTHYROXINE SODIUM
  4. KINERET [Suspect]
     Active Substance: ANAKINRA
     Route: 058
     Dates: start: 20201012
  5. ESTRADIOL. [Concomitant]
     Active Substance: ESTRADIOL

REACTIONS (8)
  - Contusion [Unknown]
  - Hyperacusis [Unknown]
  - Rash [Unknown]
  - Somnolence [Unknown]
  - Influenza like illness [Unknown]
  - Injection site bruising [Unknown]
  - Fatigue [Unknown]
  - Injection site erythema [Not Recovered/Not Resolved]
